FAERS Safety Report 12973135 (Version 1)
Quarter: 2016Q4

REPORT INFORMATION
  Report Type: Report from Study
  Country: None (occurrence: CA)
  Receive Date: 20161124
  Receipt Date: 20161124
  Transmission Date: 20170207
  Serious: Yes (Other)
  Sender: FDA-Public Use
  Company Number: CA-ABBVIE-16K-028-1785795-00

PATIENT
  Age: 26 Year
  Sex: Female

DRUGS (1)
  1. HUMIRA [Suspect]
     Active Substance: ADALIMUMAB
     Indication: CROHN^S DISEASE
     Route: 058
     Dates: start: 20120611

REACTIONS (3)
  - Excessive cerumen production [Not Recovered/Not Resolved]
  - Hypoacusis [Not Recovered/Not Resolved]
  - Ear pain [Unknown]

NARRATIVE: CASE EVENT DATE: 201611
